FAERS Safety Report 13696768 (Version 1)
Quarter: 2017Q2

REPORT INFORMATION
  Report Type: Spontaneous
  Country: BR (occurrence: BR)
  Receive Date: 20170628
  Receipt Date: 20170628
  Transmission Date: 20170830
  Serious: Yes (Other)
  Sender: FDA-Public Use
  Company Number: BR-ROCHE-1956536

PATIENT
  Sex: Female

DRUGS (2)
  1. BONVIVA [Suspect]
     Active Substance: IBANDRONATE SODIUM
     Indication: ARTHRALGIA
  2. BONVIVA [Suspect]
     Active Substance: IBANDRONATE SODIUM
     Indication: RENAL PAIN
     Route: 065

REACTIONS (6)
  - Anal haemorrhage [Unknown]
  - Fall [Unknown]
  - Visual impairment [Unknown]
  - Mouth haemorrhage [Unknown]
  - Hand fracture [Unknown]
  - Nervousness [Unknown]
